FAERS Safety Report 9283022 (Version 1)
Quarter: 2013Q2

REPORT INFORMATION
  Report Type: Spontaneous
  Country: US (occurrence: US)
  Receive Date: 20130510
  Receipt Date: 20130510
  Transmission Date: 20140414
  Serious: No
  Sender: FDA-Public Use
  Company Number: US-GLAXOSMITHKLINE-A0973853A

PATIENT
  Age: 37 Year
  Sex: Female

DRUGS (11)
  1. TYKERB [Suspect]
     Indication: BREAST CANCER
     Dosage: 3TAB PER DAY
     Route: 048
     Dates: start: 20120312
  2. INTRAVENOUS CONTRAST DYE [Suspect]
     Route: 042
     Dates: start: 20120328, end: 20120328
  3. ATIVAN [Concomitant]
  4. XANAX [Concomitant]
  5. GARLIC PILLS [Concomitant]
  6. B-12 [Concomitant]
  7. COMPAZINE [Concomitant]
  8. KYTRIL [Concomitant]
  9. STOOL SOFTENER [Concomitant]
  10. TYLENOL [Concomitant]
  11. FISH OIL [Concomitant]

REACTIONS (2)
  - Epistaxis [Recovered/Resolved]
  - Dizziness [Not Recovered/Not Resolved]
